FAERS Safety Report 9550622 (Version 1)
Quarter: 2013Q3

REPORT INFORMATION
  Report Type: Spontaneous
  Country: US (occurrence: US)
  Receive Date: 20130924
  Receipt Date: 20130924
  Transmission Date: 20140515
  Serious: No
  Sender: FDA-Public Use
  Company Number: US-SANOFI-AVENTIS-2013SA006172

PATIENT
  Age: 59 Year
  Sex: Male
  Weight: 63.85 kg

DRUGS (1)
  1. AUBAGIO [Suspect]
     Indication: MULTIPLE SCLEROSIS
     Route: 048
     Dates: start: 20130116, end: 20130401

REACTIONS (5)
  - Mucosal excoriation [Not Recovered/Not Resolved]
  - Glossodynia [Recovering/Resolving]
  - Pain [Not Recovered/Not Resolved]
  - Visual impairment [Unknown]
  - Drug dose omission [Unknown]
